FAERS Safety Report 6048482-6 (Version None)
Quarter: 2009Q1

REPORT INFORMATION
  Report Type: 
  Country: None (occurrence: None)
  Receive Date: 20090123
  Receipt Date: 20090116
  Transmission Date: 20090719
  Serious: Yes (Hospitalization)
  Sender: FDA-Public Use
  Company Number: A0764867A

PATIENT
  Age: 46 Year
  Sex: Female
  Weight: 81.4 kg

DRUGS (6)
  1. AVANDIA [Suspect]
     Dosage: 2MG PER DAY
     Route: 048
     Dates: start: 20050801, end: 20070601
  2. AVANDAMET [Suspect]
     Route: 048
     Dates: start: 20070701, end: 20080201
  3. GLUCOTROL [Concomitant]
     Dates: start: 20031201, end: 20080407
  4. LOPRESSOR [Concomitant]
     Dates: start: 20070301, end: 20071201
  5. METOPROLOL TARTRATE [Concomitant]
     Dates: start: 20060801, end: 20070501
  6. LIPITOR [Concomitant]
     Dates: start: 20070101

REACTIONS (4)
  - ANGINA PECTORIS [None]
  - CORONARY ARTERY DISEASE [None]
  - HYPERTENSION [None]
  - MYOCARDIAL INFARCTION [None]
